FAERS Safety Report 6909282-5 (Version None)
Quarter: 2010Q3

REPORT INFORMATION
  Report Type: 
  Country: None (occurrence: None)
  Receive Date: 20100803
  Receipt Date: 20100720
  Transmission Date: 20110219
  Serious: Yes (Other)
  Sender: FDA-Public Use
  Company Number: 010527

PATIENT
  Age: 4 Year
  Sex: Male

DRUGS (6)
  1. BUSULFEX [Suspect]
     Indication: STEM CELL TRANSPLANT
     Dosage: 0.8 MG/KG Q6HR INTRAVENOUS
     Route: 042
  2. ANTI-THYMOCYTE GLOBULIN NOS [Concomitant]
  3. CYCLOPHOSPHAMIDE [Concomitant]
  4. PREDNISONE [Concomitant]
  5. CYCLOSPORINE [Concomitant]
  6. PHENYTOIN [Concomitant]

REACTIONS (5)
  - ATAXIA [None]
  - DRUG TOXICITY [None]
  - PNEUMONIA [None]
  - RESTRICTIVE PULMONARY DISEASE [None]
  - STEM CELL TRANSPLANT [None]
